FAERS Safety Report 17967598 (Version 5)
Quarter: 2021Q2

REPORT INFORMATION
  Report Type: Spontaneous
  Country: US (occurrence: US)
  Receive Date: 20200701
  Receipt Date: 20210629
  Transmission Date: 20210717
  Serious: Yes (Other)
  Sender: FDA-Public Use
  Company Number: US-TEVA-2020-US-1795382

PATIENT
  Age: 44 Year
  Sex: Female
  Weight: 64.7 kg

DRUGS (22)
  1. METHYLPREDNISOLONE. [Concomitant]
     Active Substance: METHYLPREDNISOLONE
     Route: 065
  2. LEXAPRO [Concomitant]
     Active Substance: ESCITALOPRAM OXALATE
  3. DILAUDID [Concomitant]
     Active Substance: HYDROMORPHONE HYDROCHLORIDE
  4. TYLENOL EXTRA STRENGTH [Concomitant]
     Active Substance: ACETAMINOPHEN
     Dosage: 4000 MILLIGRAM DAILY;
     Route: 048
  5. VICODIN [Concomitant]
     Active Substance: ACETAMINOPHEN\HYDROCODONE BITARTRATE
  6. DIAZEPAM. [Concomitant]
     Active Substance: DIAZEPAM
     Dosage: 20 MILLIGRAM DAILY; TAKE 1 TABLET 3?4 TIMES DAILY.
     Route: 048
  7. ONDANSETRON [Concomitant]
     Active Substance: ONDANSETRON
     Indication: NAUSEA
     Route: 048
  8. SERTRALINE HCI [Concomitant]
     Dosage: 50 MILLIGRAM DAILY;
     Route: 048
  9. OXYCODONE/APAP [Suspect]
     Active Substance: ACETAMINOPHEN\OXYCODONE HYDROCHLORIDE
     Dosage: 5?325 MG 1?2 TABLET:
     Route: 065
  10. MORPHINE [Concomitant]
     Active Substance: MORPHINE
  11. CYCLOBENZAPRINE HCL [Concomitant]
     Active Substance: CYCLOBENZAPRINE HYDROCHLORIDE
     Dosage: TAKE 1 TABLET AT BEDTIME
     Route: 048
  12. KETOROLAC TROMETHAMINE. [Concomitant]
     Active Substance: KETOROLAC TROMETHAMINE
     Dosage: TAKE 1 TABLET EVERY 6 HOURS AS NEEDED
     Route: 048
  13. OXYCONTIN [Suspect]
     Active Substance: OXYCODONE HYDROCHLORIDE
     Route: 065
  14. LABETALOL HCL [Concomitant]
     Active Substance: LABETALOL HYDROCHLORIDE
     Dosage: 200 MILLIGRAM DAILY;
     Route: 048
  15. HYDROCODONE BITARTRATE AND ACETAMINOPHEN [Suspect]
     Active Substance: ACETAMINOPHEN\HYDROCODONE BITARTRATE
     Indication: PAIN
     Dosage: 30 MILLIGRAM DAILY; HYDROCODONE?ACETAMINOPHEN 5?325 MG ORAL TABLET:  TAKE I TO 2 TABLETS BY MOUTH EV
     Route: 065
  16. AMLODIPINE BESYLATE. [Concomitant]
     Active Substance: AMLODIPINE BESYLATE
     Dosage: 5 MILLIGRAM DAILY;
     Route: 048
  17. NICOTINE. [Concomitant]
     Active Substance: NICOTINE
     Dosage: 7 MG/24HR TRANSDERMAL PATCH 24 HOUR
     Route: 062
  18. ESCITALOPRAM [Concomitant]
     Active Substance: ESCITALOPRAM OXALATE
  19. TRAMADOL. [Suspect]
     Active Substance: TRAMADOL
     Indication: PAIN
     Dosage: 150 MILLIGRAM DAILY;
     Route: 048
  20. PERCOCETS [Concomitant]
  21. DIAZEPAM. [Concomitant]
     Active Substance: DIAZEPAM
     Indication: ANXIETY
     Dosage: 20 MILLIGRAM DAILY; TAKE 1 TABLET 3?4 TIMES DAILY.
     Route: 048
  22. CARISOPRODOL. [Concomitant]
     Active Substance: CARISOPRODOL
     Dosage: CARISOPRODOL 350 MG ORAL TABLET (SOMA) TAKE 1 TABLET 4 TIMES DAILY AS NEEDED
     Route: 065

REACTIONS (23)
  - Paranoia [Not Recovered/Not Resolved]
  - Paranoid personality disorder [Not Recovered/Not Resolved]
  - Vision blurred [Not Recovered/Not Resolved]
  - Balance disorder [Not Recovered/Not Resolved]
  - Serotonin syndrome [Not Recovered/Not Resolved]
  - Dyspnoea [Recovered/Resolved]
  - Emotional distress [Unknown]
  - Drug dependence [Unknown]
  - Hallucination, auditory [Not Recovered/Not Resolved]
  - Seizure [Not Recovered/Not Resolved]
  - Flashback [Not Recovered/Not Resolved]
  - Malaise [Unknown]
  - Cognitive disorder [Not Recovered/Not Resolved]
  - Nightmare [Not Recovered/Not Resolved]
  - Muscle spasms [Not Recovered/Not Resolved]
  - Tongue biting [Not Recovered/Not Resolved]
  - Aphasia [Not Recovered/Not Resolved]
  - Abnormal dreams [Not Recovered/Not Resolved]
  - Tremor [Not Recovered/Not Resolved]
  - Nervousness [Unknown]
  - Confusional state [Not Recovered/Not Resolved]
  - Blood pressure fluctuation [Not Recovered/Not Resolved]
  - Agitation [Not Recovered/Not Resolved]

NARRATIVE: CASE EVENT DATE: 2015
